FAERS Safety Report 4850964-7 (Version None)
Quarter: 2005Q4

REPORT INFORMATION
  Report Type: 
  Country: None (occurrence: None)
  Receive Date: 20051130
  Receipt Date: 20051018
  Transmission Date: 20060501
  Serious: No
  Sender: FDA-Public Use
  Company Number: FABR-11279

PATIENT
  Age: 41 Year
  Sex: Female
  Weight: 91.6266 kg

DRUGS (8)
  1. FABRAZYME [Suspect]
     Indication: FABRY'S DISEASE
     Dosage: 90 MG Q2WKS IV
     Route: 042
     Dates: start: 20050101
  2. FABRAZYME [Suspect]
     Indication: FABRY'S DISEASE
     Dosage: 75 MG Q2WKS IV
     Route: 042
     Dates: start: 20040430, end: 20050101
  3. ACETAMINOPHEN [Concomitant]
  4. ANTIHISTAMINE [Concomitant]
  5. SYNTHROID [Concomitant]
  6. DHEA [Concomitant]
  7. ZANTAC [Concomitant]
  8. CENESTIN [Concomitant]

REACTIONS (3)
  - CHEST PAIN [None]
  - SKIN DISORDER [None]
  - SKIN PAPILLOMA [None]
